FAERS Safety Report 24691106 (Version 1)
Quarter: 2024Q4

REPORT INFORMATION
  Report Type: Spontaneous
  Country: JP (occurrence: JP)
  Receive Date: 20241203
  Receipt Date: 20241203
  Transmission Date: 20250115
  Serious: Yes (Hospitalization, Other)
  Sender: SANOFI AVENTIS
  Company Number: JP-SA-2024SA355669

PATIENT
  Age: 76 Year
  Sex: Male

DRUGS (1)
  1. FERRIC HYDROXIDE [Suspect]
     Active Substance: FERRIC HYDROXIDE
     Indication: Hyperphosphataemia
     Dosage: UNK (STRENGTH: 250 MG)
     Route: 048

REACTIONS (3)
  - Peritonitis [Recovered/Resolved]
  - Ascites [Recovered/Resolved]
  - Small intestinal perforation [Recovered/Resolved]
